FAERS Safety Report 4321861-0 (Version None)
Quarter: 2004Q1

REPORT INFORMATION
  Report Type: 
  Country: None (occurrence: None)
  Receive Date: 20040322
  Receipt Date: 20031202
  Transmission Date: 20041129
  Serious: No
  Sender: FDA-Public Use
  Company Number: A-US2003-03897

PATIENT
  Age: 59 Year
  Sex: Female

DRUGS (6)
  1. TRACLEER [Suspect]
     Dosage: 62.5 MG, BID,ORAL
     Route: 048
     Dates: start: 20030801
  2. LASIX [Concomitant]
  3. POTASSIUM (POTASSIUM) [Concomitant]
  4. COUMADIN [Concomitant]
  5. PREDNISONE [Concomitant]
  6. PROTONIX [Concomitant]

REACTIONS (2)
  - HYPOTENSION [None]
  - TACHYCARDIA [None]
